FAERS Safety Report 10124172 (Version 2)
Quarter: 2015Q1

REPORT INFORMATION
  Report Type: Other
  Country: US (occurrence: US)
  Receive Date: 20140427
  Receipt Date: 20150223
  Transmission Date: 20150720
  Serious: Yes (Hospitalization, Other)
  Sender: FDA-Public Use
  Company Number: US-GSKPPD-2014GSK026506

PATIENT
  Age: 66 Year
  Sex: Male

DRUGS (6)
  1. CLONIDINE. [Concomitant]
     Active Substance: CLONIDINE
     Dosage: AS NEEDED
  2. NORVASC [Concomitant]
     Active Substance: AMLODIPINE BESYLATE
  3. HEPARIN [Concomitant]
     Active Substance: HEPARIN SODIUM
     Route: 058
  4. AVANDIA [Suspect]
     Active Substance: ROSIGLITAZONE MALEATE
     Indication: DIABETES MELLITUS
     Dosage: AVANDIA WAS NOT LISTED AMONG THE PATIENT^S RECORDS REVIEWED.
     Route: 048
  5. LISINOPRIL. [Concomitant]
     Active Substance: LISINOPRIL
  6. ASPIRIN. [Concomitant]
     Active Substance: ASPIRIN

REACTIONS (1)
  - Cerebrovascular accident [Recovered/Resolved]

NARRATIVE: CASE EVENT DATE: 20050814
